FAERS Safety Report 7762853-9 (Version None)
Quarter: 2011Q3

REPORT INFORMATION
  Report Type: 
  Country: None (occurrence: None)
  Receive Date: 20110825
  Receipt Date: 20110628
  Transmission Date: 20111222
  Serious: No
  Sender: FDA-Public Use
  Company Number: 331090

PATIENT
  Sex: Female

DRUGS (1)
  1. VICTOZA [Suspect]
     Indication: TYPE 2 DIABETES MELLITUS
     Dosage: 0.6 MG, QD, SUBCUTANEOUS ; REGIMEN # 2 1.2 MG, QD, SUBCUTANEOUS ; REGIMEN # 3 06. MG, QD
     Route: 058

REACTIONS (2)
  - MALAISE [None]
  - FATIGUE [None]
